FAERS Safety Report 18782202 (Version 1)
Quarter: 2021Q1

REPORT INFORMATION
  Report Type: Spontaneous
  Country: US (occurrence: US)
  Receive Date: 20210125
  Receipt Date: 20210125
  Transmission Date: 20210419
  Serious: Yes (Other)
  Sender: FDA-Public Use
  Company Number: None

PATIENT
  Age: 71 Year
  Sex: Female
  Weight: 54.45 kg

DRUGS (16)
  1. LATANOPROST. [Concomitant]
     Active Substance: LATANOPROST
  2. TURMERIC [Concomitant]
     Active Substance: HERBALS\TURMERIC
  3. PRAVASTATIN. [Concomitant]
     Active Substance: PRAVASTATIN
  4. TIMOLOL MALEATE. [Concomitant]
     Active Substance: TIMOLOL MALEATE
  5. LUTEIN [Concomitant]
     Active Substance: LUTEIN
  6. GINGKO [Concomitant]
     Active Substance: GINKGO
  7. ALENDRONATE SODIUM TABLETS, USP 70 MG [Suspect]
     Active Substance: ALENDRONATE SODIUM
     Indication: OSTEOPOROSIS
     Dosage: ?          QUANTITY:1 TABLET(S);OTHER FREQUENCY:ONCE WEEKLY;?
     Route: 048
     Dates: start: 20210103, end: 20210103
  8. CALCIUM [Concomitant]
     Active Substance: CALCIUM
  9. NON?ASPIRIN [Concomitant]
     Active Substance: ACETAMINOPHEN
  10. ANTIHISTAMINE [Concomitant]
     Active Substance: ANTIHISTAMINES NOS
  11. VITAMIN A [Concomitant]
     Active Substance: VITAMIN A
  12. MULTIPLE VITAMIN [Concomitant]
     Active Substance: VITAMINS
  13. ASHWAGANDA [Concomitant]
     Active Substance: HERBALS
  14. VITAMIN C [Concomitant]
     Active Substance: ASCORBIC ACID
  15. SUDAFED [Concomitant]
     Active Substance: PSEUDOEPHEDRINE HYDROCHLORIDE
  16. VITAMIN D [Concomitant]
     Active Substance: VITAMIN D NOS

REACTIONS (6)
  - Ear pruritus [None]
  - Swollen tongue [None]
  - Pharyngeal swelling [None]
  - Toothache [None]
  - Pain in jaw [None]
  - Tinnitus [None]

NARRATIVE: CASE EVENT DATE: 20210103
